FAERS Safety Report 9165189 (Version 1)
Quarter: 2013Q1

REPORT INFORMATION
  Report Type: Spontaneous
  Country: IT (occurrence: None)
  Receive Date: 20130228
  Receipt Date: 20130228
  Transmission Date: 20140127
  Serious: Yes (Hospitalization)
  Sender: FDA-Public Use
  Company Number: AUR-APL-2013-01823

PATIENT
  Age: 49 Year
  Sex: Male

DRUGS (3)
  1. OLANZAPINE (OLANZAPINE) [Suspect]
     Indication: INTENTIONAL SELF-INJURY
     Dosage: 1 DOSE UNIT/TOTAL
     Dates: start: 20130206, end: 20130206
  2. LORAZEPAM (LORAZEPAM) [Suspect]
     Dosage: I DOSE UNIT, TOTAL
     Route: 048
     Dates: start: 20130206, end: 20130206
  3. DEPAKIN [Suspect]
     Indication: INTENTIONAL SELF-INJURY
     Dosage: 1 DOSE UNIT/TOTAL
     Dates: start: 20130206, end: 20130206

REACTIONS (10)
  - Intentional self-injury [None]
  - Cardiac enzymes increased [None]
  - Sopor [None]
  - Electrocardiogram repolarisation abnormality [None]
  - Toxicity to various agents [None]
  - Somnolence [None]
  - Drug abuse [None]
  - Blood creatine phosphokinase increased [None]
  - Anticonvulsant drug level above therapeutic [None]
  - Myoglobin blood increased [None]
